FAERS Safety Report 9798107 (Version 1)
Quarter: 2014Q1

REPORT INFORMATION
  Report Type: Spontaneous
  Country: FR (occurrence: FR)
  Receive Date: 20140106
  Receipt Date: 20140106
  Transmission Date: 20141002
  Serious: Yes (Life-Threatening, Hospitalization)
  Sender: FDA-Public Use
  Company Number: FR-NOVOPROD-396856

PATIENT
  Age: 64 Year
  Sex: Female

DRUGS (13)
  1. VICTOZA [Suspect]
     Indication: DIABETES MELLITUS INADEQUATE CONTROL
     Dosage: UNK
     Route: 065
     Dates: start: 201309
  2. VICTOZA [Suspect]
     Dosage: UNK
     Route: 065
     Dates: start: 20131003, end: 20131025
  3. METFORMINE [Suspect]
     Indication: TYPE 2 DIABETES MELLITUS
     Dosage: UNK
     Route: 065
     Dates: start: 2010, end: 20131025
  4. GLIMEPIRIDE [Concomitant]
     Indication: TYPE 2 DIABETES MELLITUS
     Dosage: UNK
     Dates: start: 2010, end: 20131025
  5. PLAVIX [Concomitant]
     Dosage: UNK
     Route: 065
  6. UVEDOSE [Concomitant]
     Route: 065
  7. LESCOL [Concomitant]
     Dosage: UNK
     Route: 065
  8. CORVASAL                           /00547101/ [Concomitant]
     Dosage: UNK
     Route: 065
  9. DEROXAT [Concomitant]
     Dosage: UNK
     Route: 065
  10. AVLOCARDYL                         /00030001/ [Concomitant]
     Dosage: UNK
     Route: 065
  11. RAMIPRIL [Concomitant]
     Dosage: UNK
     Route: 065
  12. TARDYFERON [Concomitant]
     Dosage: UNK
     Route: 065
  13. STILNOX [Concomitant]
     Dosage: UNK
     Route: 065

REACTIONS (5)
  - Jaundice [Not Recovered/Not Resolved]
  - Asthenia [Not Recovered/Not Resolved]
  - Liver disorder [Not Recovered/Not Resolved]
  - Decreased appetite [Not Recovered/Not Resolved]
  - Diabetes mellitus inadequate control [Unknown]
